FAERS Safety Report 5910980-0 (Version None)
Quarter: 2008Q4

REPORT INFORMATION
  Report Type: 
  Country: None (occurrence: None)
  Receive Date: 20081003
  Receipt Date: 20081003
  Transmission Date: 20090506
  Serious: No
  Sender: FDA-Public Use
  Company Number: None

PATIENT
  Sex: Female
  Weight: 63.5036 kg

DRUGS (2)
  1. ELIDEL [Suspect]
     Indication: ECZEMA
     Dosage: SMALL AMOUNT OF CREAM ONCE DAY TOP
     Route: 061
     Dates: start: 20030328, end: 20050227
  2. PROTOPIC [Suspect]

REACTIONS (12)
  - ABSCESS [None]
  - ALOPECIA [None]
  - ANXIETY [None]
  - CHEST PAIN [None]
  - DRUG INEFFECTIVE [None]
  - IMMUNE SYSTEM DISORDER [None]
  - INSOMNIA [None]
  - NON-HODGKIN'S LYMPHOMA [None]
  - PAIN [None]
  - RESTLESS LEGS SYNDROME [None]
  - SENSORY DISTURBANCE [None]
  - TENDON DISORDER [None]
